FAERS Safety Report 8158607-4 (Version None)
Quarter: 2012Q1

REPORT INFORMATION
  Report Type: 
  Country: None (occurrence: None)
  Receive Date: 20120223
  Receipt Date: 20120215
  Transmission Date: 20120608
  Serious: Yes (Hospitalization)
  Sender: FDA-Public Use
  Company Number: US-BAYER-201027723NA

PATIENT
  Age: 32 Year
  Sex: Female
  Weight: 86.168 kg

DRUGS (6)
  1. YAZ [Suspect]
     Indication: ORAL CONTRACEPTION
     Dosage: UNK UNK, UNK
     Route: 048
     Dates: start: 20080701, end: 20080830
  2. SEROQUEL [Concomitant]
  3. FEXOFENADINE [Concomitant]
     Dosage: UNK
     Dates: start: 20080101
  4. ALIMENTARY TRACT AND METABOLISM [Concomitant]
     Indication: PAIN
     Dosage: UNK
     Dates: start: 20080816
  5. PROAIR HFA [Concomitant]
     Dosage: UNK
     Dates: start: 20080101
  6. ALBUTEROL [Concomitant]
     Dosage: UNK
     Dates: start: 20080101

REACTIONS (1)
  - PULMONARY EMBOLISM [None]
